FAERS Safety Report 21886145 (Version 1)
Quarter: 2023Q1

REPORT INFORMATION
  Report Type: Spontaneous
  Country: US (occurrence: None)
  Receive Date: 20230118
  Receipt Date: 20230118
  Transmission Date: 20230417
  Serious: Yes (Death)
  Sender: FDA-Public Use
  Company Number: None

PATIENT
  Age: 79 Year
  Sex: Male

DRUGS (1)
  1. IMATINIB MESYLATE [Suspect]
     Active Substance: IMATINIB MESYLATE
     Dosage: 1 TABLET ONCE A DAY BY MOUTH
     Route: 048
     Dates: start: 20170907, end: 20230116

REACTIONS (1)
  - Death [None]

NARRATIVE: CASE EVENT DATE: 20230116
